FAERS Safety Report 7523266-8 (Version None)
Quarter: 2011Q2

REPORT INFORMATION
  Report Type: 
  Country: None (occurrence: None)
  Receive Date: 20110603
  Receipt Date: 20110519
  Transmission Date: 20111010
  Serious: Yes (Hospitalization)
  Sender: FDA-Public Use
  Company Number: A0812201A

PATIENT
  Age: 50 Year
  Sex: Male

DRUGS (6)
  1. GLUCOTROL [Concomitant]
  2. AVANDIA [Suspect]
     Dosage: 8MG PER DAY
     Route: 048
     Dates: start: 20020720, end: 20061201
  3. CRESTOR [Concomitant]
  4. VIOXX [Concomitant]
  5. ALTACE [Concomitant]
  6. ZOCOR [Concomitant]

REACTIONS (4)
  - ACUTE CORONARY SYNDROME [None]
  - MYOCARDIAL INFARCTION [None]
  - CORONARY ARTERY DISEASE [None]
  - CARDIAC DISORDER [None]
